FAERS Safety Report 8580170 (Version 2)
Quarter: 2014Q1

REPORT INFORMATION
  Report Type: Spontaneous
  Country: US (occurrence: None)
  Receive Date: 20120323
  Receipt Date: 20130305
  Transmission Date: 20141002
  Serious: Yes (Hospitalization)
  Sender: FDA-Public Use
  Company Number: 163-21880-11112954

PATIENT
  Sex: Male

DRUGS (1)
  1. REVLIMID [Suspect]
     Indication: PLASMA CELL MYELOMA
     Dosage: 10 MG, DAILY FOR 21 DAYS EVERY 28 DAYS, PO
     Route: 048
     Dates: start: 20100712

REACTIONS (7)
  - Infection [None]
  - Cellulitis [None]
  - Visual impairment [None]
  - Scar [None]
  - Blister [None]
  - Dermatitis [None]
  - Erythema [None]
